FAERS Safety Report 6041386-4 (Version None)
Quarter: 2009Q1

REPORT INFORMATION
  Report Type: 
  Country: None (occurrence: None)
  Receive Date: 20090116
  Receipt Date: 20081009
  Transmission Date: 20090719
  Serious: No
  Sender: FDA-Public Use
  Company Number: US-BRISTOL-MYERS SQUIBB COMPANY-14364053

PATIENT
  Age: 12 Year
  Sex: Male

DRUGS (3)
  1. ABILIFY [Suspect]
     Indication: MANIA
  2. LITHIUM [Concomitant]
  3. HALDOL [Concomitant]

REACTIONS (3)
  - COGNITIVE DISORDER [None]
  - DISTURBANCE IN ATTENTION [None]
  - MOTOR DYSFUNCTION [None]
